FAERS Safety Report 7163740-X (Version None)
Quarter: 2010Q4

REPORT INFORMATION
  Report Type: 
  Country: None (occurrence: None)
  Receive Date: 20101215
  Receipt Date: 20100608
  Transmission Date: 20110411
  Serious: Yes (Hospitalization)
  Sender: FDA-Public Use
  Company Number: DE-PFIZER INC-2010071357

PATIENT
  Age: 40 Year
  Sex: Male

DRUGS (9)
  1. LYRICA [Suspect]
     Dosage: 150 MG, PER DAY
     Route: 048
     Dates: start: 20100316, end: 20100317
  2. DIAZEPAM [Suspect]
     Dosage: UNK
     Dates: start: 20100309, end: 20100311
  3. DIAZEPAM [Suspect]
     Dosage: 5 MG, PER DAY
     Route: 048
     Dates: start: 20100313, end: 20100313
  4. DIAZEPAM [Suspect]
     Dosage: 10 MG, PER DAY
     Route: 048
     Dates: start: 20100314, end: 20100315
  5. DIAZEPAM [Suspect]
     Dosage: 7.5 MG,  PER DAY
     Route: 048
     Dates: start: 20100316, end: 20100316
  6. DIAZEPAM [Suspect]
     Dosage: 5 MG,  PER DAY
     Route: 048
     Dates: start: 20100317, end: 20100317
  7. DIAZEPAM [Suspect]
     Dosage: 2.5 MG, PER DAY
     Route: 048
     Dates: start: 20100318
  8. DOXEPIN [Concomitant]
     Dosage: 150 MG, PER DAY
     Route: 048
     Dates: start: 20100313, end: 20100313
  9. DOXEPIN [Concomitant]
     Dosage: 200 MG,  PER DAY
     Route: 048
     Dates: start: 20100314

REACTIONS (4)
  - DERMATITIS ALLERGIC [None]
  - DRY SKIN [None]
  - SKIN CHAPPED [None]
  - SKIN EXFOLIATION [None]
